FAERS Safety Report 18995777 (Version 1)
Quarter: 2021Q1

REPORT INFORMATION
  Report Type: Spontaneous
  Country: BR (occurrence: BR)
  Receive Date: 20210310
  Receipt Date: 20210310
  Transmission Date: 20210420
  Serious: Yes (Death, Other)
  Sender: FDA-Public Use
  Company Number: BR-ABBVIE-21K-020-3808216-00

PATIENT
  Age: 49 Year
  Sex: Male
  Weight: 85 kg

DRUGS (3)
  1. VENCLEXTA [Suspect]
     Active Substance: VENETOCLAX
     Indication: MYELOFIBROSIS
     Route: 048
     Dates: start: 20210106, end: 202101
  2. VENCLEXTA [Suspect]
     Active Substance: VENETOCLAX
     Route: 048
     Dates: start: 202101, end: 202101
  3. VENCLEXTA [Suspect]
     Active Substance: VENETOCLAX
     Indication: ACUTE LEUKAEMIA
     Route: 048
     Dates: start: 20201227

REACTIONS (8)
  - Candida sepsis [Recovered/Resolved]
  - Cardiac arrest [Fatal]
  - Leukaemia [Recovered/Resolved]
  - Asthenia [Not Recovered/Not Resolved]
  - Bacteraemia [Recovered/Resolved]
  - Malaise [Unknown]
  - Off label use [Unknown]
  - Respiratory arrest [Fatal]

NARRATIVE: CASE EVENT DATE: 202101
